FAERS Safety Report 19665517 (Version 1)
Quarter: 2021Q3

REPORT INFORMATION
  Report Type: Report from Study
  Country: CA (occurrence: CA)
  Receive Date: 20210805
  Receipt Date: 20210805
  Transmission Date: 20211014
  Serious: Yes (Other)
  Sender: FDA-Public Use
  Company Number: CA-JNJFOC-20201215425

PATIENT
  Age: 28 Year
  Sex: Male
  Weight: 130.95 kg

DRUGS (1)
  1. REMICADE [Suspect]
     Active Substance: INFLIXIMAB
     Indication: CROHN^S DISEASE
     Dosage: ON 29?DEC?2020, THE PATIENT RECEIVED THE INFUSION
     Route: 042
     Dates: start: 20140512

REACTIONS (15)
  - Hypokinesia [Unknown]
  - Chills [Unknown]
  - COVID-19 [Recovered/Resolved]
  - Heart rate increased [Unknown]
  - Abdominal distension [Recovering/Resolving]
  - Sleep apnoea syndrome [Recovering/Resolving]
  - Flatulence [Recovering/Resolving]
  - Hot flush [Unknown]
  - Abdominal pain [Unknown]
  - Haematochezia [Recovering/Resolving]
  - Gastrointestinal motility disorder [Unknown]
  - Fatigue [Unknown]
  - Hypertension [Unknown]
  - Asthma [Recovering/Resolving]
  - Hyperhidrosis [Unknown]

NARRATIVE: CASE EVENT DATE: 20201201
